FAERS Safety Report 12329039 (Version 1)
Quarter: 2016Q2

REPORT INFORMATION
  Report Type: Report from Study
  Country: US (occurrence: US)
  Receive Date: 20160503
  Receipt Date: 20160503
  Transmission Date: 20160815
  Serious: Yes (Other)
  Sender: FDA-Public Use
  Company Number: US-ROCHE-1749009

PATIENT
  Age: 56 Year
  Sex: Female
  Weight: 74.91 kg

DRUGS (7)
  1. XOLAIR [Suspect]
     Active Substance: OMALIZUMAB
     Indication: URTICARIA CHRONIC
  2. DOXEPIN [Concomitant]
     Active Substance: DOXEPIN
     Indication: CHRONIC SPONTANEOUS URTICARIA
     Dosage: AT NIGHT
     Route: 048
     Dates: start: 20151029
  3. CLONAZEPAM. [Concomitant]
     Active Substance: CLONAZEPAM
     Indication: MYOCLONUS
     Route: 065
  4. PREDNISONE. [Concomitant]
     Active Substance: PREDNISONE
  5. XOLAIR [Suspect]
     Active Substance: OMALIZUMAB
     Indication: IDIOPATHIC URTICARIA
     Dosage: 300 MG EVERY 4 WEEKS, INFFUSION
     Route: 058
     Dates: start: 20160105, end: 20160209
  6. LEVOTHYROXINE. [Concomitant]
     Active Substance: LEVOTHYROXINE
     Indication: HYPOTHYROIDISM
     Route: 048
  7. ALBUTEROL. [Concomitant]
     Active Substance: ALBUTEROL
     Indication: ASTHMA
     Dosage: 2 PUFFS, AS NEEDED
     Route: 065

REACTIONS (1)
  - Anaphylactic reaction [Recovered/Resolved]

NARRATIVE: CASE EVENT DATE: 20160105
